FAERS Safety Report 6377134-8 (Version None)
Quarter: 2009Q3

REPORT INFORMATION
  Report Type: 
  Country: None (occurrence: None)
  Receive Date: 20090925
  Receipt Date: 20090917
  Transmission Date: 20100115
  Serious: Yes (Other)
  Sender: FDA-Public Use
  Company Number: JP-PFIZER INC-2009268629

PATIENT
  Age: 90 Year

DRUGS (1)
  1. NORVASC [Suspect]
     Dosage: UNK
     Route: 048
     Dates: start: 20090119, end: 20090906

REACTIONS (3)
  - GASTRIC CANCER [None]
  - HAEMOGLOBIN DECREASED [None]
  - RED BLOOD CELL COUNT DECREASED [None]
